FAERS Safety Report 9761492 (Version 1)
Quarter: 2013Q4

REPORT INFORMATION
  Report Type: Spontaneous
  Country: US (occurrence: US)
  Receive Date: 20131216
  Receipt Date: 20131216
  Transmission Date: 20140711
  Serious: No
  Sender: FDA-Public Use
  Company Number: US-BIOGENIDEC-2013BI107642

PATIENT
  Age: 42 Year
  Sex: Female
  Weight: 61 kg

DRUGS (18)
  1. TECFIDERA [Suspect]
     Indication: PRODUCT USED FOR UNKNOWN INDICATION
     Route: 048
  2. TECFIDERA [Suspect]
     Indication: PRODUCT USED FOR UNKNOWN INDICATION
     Route: 048
  3. CHLORELLA [Concomitant]
     Route: 048
  4. SPIRULINA [Concomitant]
     Route: 048
  5. XALATAN [Concomitant]
  6. ALPRAZOLAM [Concomitant]
     Route: 048
  7. IBUPRFEN [Concomitant]
     Route: 048
  8. GABAPENTIN [Concomitant]
     Route: 048
  9. TRINESSA [Concomitant]
     Route: 048
  10. FISH OIL [Concomitant]
     Route: 048
  11. FLAX OIL [Concomitant]
     Route: 048
  12. CHLOROPHYLL [Concomitant]
     Route: 048
  13. DIPHENHYDRAM [Concomitant]
     Route: 048
  14. ALPHA LIPOIC [Concomitant]
     Route: 048
  15. IRON TAB [Concomitant]
     Route: 048
  16. MAGNESIUM [Concomitant]
     Route: 048
  17. ACAI [Concomitant]
     Route: 048
  18. VITMIN D [Concomitant]
     Route: 048

REACTIONS (3)
  - Headache [Unknown]
  - Nausea [Unknown]
  - Abdominal pain [Unknown]
